FAERS Safety Report 11788714 (Version 1)
Quarter: 2015Q4

REPORT INFORMATION
  Report Type: Spontaneous
  Country: US (occurrence: None)
  Receive Date: 20151130
  Receipt Date: 20151130
  Transmission Date: 20160305
  Serious: Yes (Hospitalization)
  Sender: FDA-Public Use
  Company Number: None

PATIENT
  Age: 61 Year
  Sex: Male
  Weight: 108.86 kg

DRUGS (6)
  1. LORZONE [Suspect]
     Active Substance: CHLORZOXAZONE
     Indication: BACK PAIN
     Dosage: 1 PILL
     Route: 048
     Dates: start: 20150818, end: 20151001
  2. HYDROCODONE/ACETEMENOPHEN [Concomitant]
  3. LORAZEPAM. [Concomitant]
     Active Substance: LORAZEPAM
  4. ALEVE [Concomitant]
     Active Substance: NAPROXEN SODIUM
  5. LISONOPRIL [Concomitant]
  6. ASPIRIN. [Concomitant]
     Active Substance: ASPIRIN

REACTIONS (5)
  - Vomiting [None]
  - Nausea [None]
  - Pyrexia [None]
  - Unresponsive to stimuli [None]
  - Chills [None]

NARRATIVE: CASE EVENT DATE: 20151115
